FAERS Safety Report 9003151 (Version 3)
Quarter: 2014Q2

REPORT INFORMATION
  Report Type: Spontaneous
  Country: US (occurrence: US)
  Receive Date: 20130108
  Receipt Date: 20140430
  Transmission Date: 20141212
  Serious: Yes (Death, Hospitalization, Other)
  Sender: FDA-Public Use
  Company Number: US-009507513-1301USA002320

PATIENT
  Sex: Male
  Weight: 136.5 kg

DRUGS (10)
  1. JANUVIA [Suspect]
     Indication: TYPE 2 DIABETES MELLITUS
     Dosage: 100 MG, QD
     Route: 048
     Dates: start: 2007, end: 201105
  2. BYETTA [Suspect]
     Indication: TYPE 2 DIABETES MELLITUS
     Dosage: UNK, QD
     Dates: start: 2007, end: 2007
  3. GLUMETZA [Concomitant]
     Indication: TYPE 2 DIABETES MELLITUS
     Dosage: UNK
     Dates: end: 201105
  4. ANTARA [Concomitant]
     Indication: TYPE 2 DIABETES MELLITUS
     Dosage: UNK
     Dates: start: 2007, end: 201105
  5. ZONEGRAN [Concomitant]
     Indication: TYPE 2 DIABETES MELLITUS
     Dosage: UNK
     Dates: start: 2007, end: 201105
  6. TEKTURNA [Concomitant]
     Indication: TYPE 2 DIABETES MELLITUS
     Dosage: UNK
     Dates: start: 2007, end: 201105
  7. SYNTHROID [Concomitant]
     Indication: INFERTILITY MALE
     Dosage: UNK
     Dates: start: 1980, end: 201105
  8. POTASSIUM (UNSPECIFIED) [Concomitant]
     Indication: FLUID RETENTION
     Dosage: UNK
     Dates: start: 1970, end: 201105
  9. CELEXA [Concomitant]
     Indication: DEPRESSION
     Dosage: UNK
     Dates: start: 2000, end: 201105
  10. FUROSEMIDE [Concomitant]
     Dosage: UNK
     Dates: start: 1960, end: 201105

REACTIONS (68)
  - Pancreatic carcinoma [Unknown]
  - Bile duct adenocarcinoma [Fatal]
  - Cholelithiasis [Unknown]
  - Biliary cancer metastatic [Unknown]
  - Gastroenterostomy [Unknown]
  - Urosepsis [Fatal]
  - Urinary tract infection [Unknown]
  - Clostridium difficile colitis [Unknown]
  - Dehydration [Unknown]
  - Biliary sepsis [Unknown]
  - Cholangitis acute [Fatal]
  - Cholecystitis [Unknown]
  - Septic shock [Unknown]
  - Gangrene [Unknown]
  - Duodenal ulcer haemorrhage [Unknown]
  - Cardiac pacemaker insertion [Unknown]
  - Ventriculo-peritoneal shunt [Unknown]
  - Eyelid ptosis [Unknown]
  - Haemorrhagic anaemia [Unknown]
  - Cardiac disorder [Unknown]
  - Pain [Unknown]
  - Myocardial infarction [Unknown]
  - Peripheral swelling [Unknown]
  - Renal failure chronic [Not Recovered/Not Resolved]
  - Renal failure acute [Not Recovered/Not Resolved]
  - Hypertension [Unknown]
  - Hypothyroidism [Unknown]
  - Syncope [Unknown]
  - Bile duct stent insertion [Unknown]
  - Urinary tract infection [Unknown]
  - Hypokalaemia [Unknown]
  - Thrombocytopenia [Not Recovered/Not Resolved]
  - Gastrooesophageal reflux disease [Unknown]
  - Clostridium difficile colitis [Unknown]
  - Oedema peripheral [Not Recovered/Not Resolved]
  - Filariasis [Unknown]
  - Nephrolithiasis [Unknown]
  - Haematuria [Not Recovered/Not Resolved]
  - Atrial fibrillation [Unknown]
  - Normal pressure hydrocephalus [Unknown]
  - Anaemia [Unknown]
  - Diabetic nephropathy [Unknown]
  - Cellulitis [Unknown]
  - Peripheral venous disease [Not Recovered/Not Resolved]
  - Blood cholesterol increased [Unknown]
  - Agitation [Unknown]
  - Sleep apnoea syndrome [Unknown]
  - Narcolepsy [Unknown]
  - Restless legs syndrome [Unknown]
  - Panic attack [Unknown]
  - Facial paresis [Unknown]
  - Transient ischaemic attack [Unknown]
  - Anuria [Unknown]
  - Bile duct exploration [Unknown]
  - Tinea pedis [Unknown]
  - Dysentery [Unknown]
  - Skin irritation [Unknown]
  - Arteriosclerosis coronary artery [Unknown]
  - Mental status changes [Unknown]
  - Skin ulcer [Unknown]
  - Leukocytosis [Unknown]
  - Epistaxis [Unknown]
  - Exploratory operation [Unknown]
  - Medical device complication [Unknown]
  - Haematochezia [Unknown]
  - Gait disturbance [Unknown]
  - Balance disorder [Unknown]
  - Constipation [Unknown]
